FAERS Safety Report 19948173 (Version 2)
Quarter: 2024Q3

REPORT INFORMATION
  Report Type: Spontaneous
  Country: US (occurrence: US)
  Receive Date: 20211012
  Receipt Date: 20240715
  Transmission Date: 20241017
  Serious: Yes (Hospitalization, Other)
  Sender: PIERRE FABRE MEDICAMENT
  Company Number: US-PFM-2021-09313

PATIENT
  Sex: Female
  Weight: 8 kg

DRUGS (1)
  1. HEMANGEOL [Suspect]
     Active Substance: PROPRANOLOL HYDROCHLORIDE
     Indication: Haemangioma
     Dosage: 2.3 ML, BID (2/DAY)
     Route: 048

REACTIONS (3)
  - Ulcerated haemangioma [Unknown]
  - Haemorrhage [Unknown]
  - Irritability [Not Recovered/Not Resolved]
